FAERS Safety Report 4977817-8 (Version None)
Quarter: 2006Q2

REPORT INFORMATION
  Report Type: 
  Country: None (occurrence: None)
  Receive Date: 20060420
  Receipt Date: 20060407
  Transmission Date: 20061013
  Serious: Yes (Death)
  Sender: FDA-Public Use
  Company Number: DE-JNJFOC-20060402205

PATIENT
  Sex: Female
  Weight: 82 kg

DRUGS (1)
  1. GALANTAMINE HYDROBROMIDE [Suspect]
     Route: 065

REACTIONS (3)
  - CONFUSIONAL STATE [None]
  - DEATH [None]
  - RESTLESSNESS [None]
